FAERS Safety Report 9316505 (Version 1)
Quarter: 2013Q2

REPORT INFORMATION
  Report Type: Spontaneous
  Country: JP (occurrence: JP)
  Receive Date: 20130530
  Receipt Date: 20130530
  Transmission Date: 20140414
  Serious: Yes (Hospitalization)
  Sender: FDA-Public Use
  Company Number: JP-ROCHE-1215989

PATIENT
  Age: 80 Year
  Sex: Male
  Weight: 45 kg

DRUGS (5)
  1. AVASTIN [Suspect]
     Indication: COLON CANCER RECURRENT
     Route: 041
     Dates: start: 20121008, end: 20130110
  2. NORVASC [Concomitant]
     Dosage: DRUG REPORTED AS NORVASC OD
     Route: 048
  3. BLOPRESS [Concomitant]
     Route: 048
  4. JANUVIA [Concomitant]
     Route: 048
  5. METGLUCON [Concomitant]
     Route: 048

REACTIONS (2)
  - Haemoptysis [Recovered/Resolved]
  - Cardiac failure [Unknown]
